FAERS Safety Report 6848523-X (Version None)
Quarter: 2010Q3

REPORT INFORMATION
  Report Type: 
  Country: None (occurrence: None)
  Receive Date: 20100716
  Receipt Date: 20100618
  Transmission Date: 20110219
  Serious: Yes (Hospitalization, Other)
  Sender: FDA-Public Use
  Company Number: US-BAYER-201021373NA

PATIENT
  Age: 27 Year
  Sex: Female
  Weight: 73 kg

DRUGS (7)
  1. YAZ [Suspect]
     Indication: CONTRACEPTION
     Route: 048
     Dates: start: 20080901, end: 20090201
  2. TOPROL-XL [Concomitant]
     Indication: PRODUCT USED FOR UNKNOWN INDICATION
  3. EFFEXOR [Concomitant]
     Indication: PRODUCT USED FOR UNKNOWN INDICATION
  4. AMBIEN [Concomitant]
     Indication: INSOMNIA
  5. METOPROLOL [Concomitant]
     Indication: PRODUCT USED FOR UNKNOWN INDICATION
     Dates: start: 20090201
  6. PRILOSEC [Concomitant]
     Indication: PRODUCT USED FOR UNKNOWN INDICATION
     Dates: start: 20090201
  7. HYDROCODONE [Concomitant]
     Indication: PRODUCT USED FOR UNKNOWN INDICATION
     Dates: start: 20090201

REACTIONS (5)
  - ANAEMIA [None]
  - CHEST PAIN [None]
  - DYSPNOEA [None]
  - PLEURAL EFFUSION [None]
  - PULMONARY EMBOLISM [None]
